FAERS Safety Report 18589468 (Version 1)
Quarter: 2020Q4

REPORT INFORMATION
  Report Type: Spontaneous
  Country: CN (occurrence: CN)
  Receive Date: 20201208
  Receipt Date: 20201208
  Transmission Date: 20210114
  Serious: Yes (Other)
  Sender: FDA-Public Use
  Company Number: CN-JNJFOC-20201205552

PATIENT
  Age: 4 Day
  Sex: Female
  Weight: .7 kg

DRUGS (3)
  1. CHILDRENS MOTRIN [Suspect]
     Active Substance: IBUPROFEN
     Dosage: MANUFACTURER: SHANGHAI JOHNSON + JOHNSON PHARMACEUTICALS LTD.?DOSE: 0.16 ML (3.2 MG) AT 11:00
     Route: 048
     Dates: start: 20201117
  2. CHILDRENS MOTRIN [Suspect]
     Active Substance: IBUPROFEN
     Dosage: MANUFACTURER: SHANGHAI JOHNSON + JOHNSON PHARMACEUTICALS LTD.?DOSE: 0.16 ML (3.2 MG) AT 11:00
     Route: 048
     Dates: start: 20201118, end: 20201118
  3. CHILDRENS MOTRIN [Suspect]
     Active Substance: IBUPROFEN
     Indication: PATENT DUCTUS ARTERIOSUS
     Dosage: MANUFACTURER: SHANGHAI JOHNSON + JOHNSON PHARMACEUTICALS LTD.?DOSE: 0.31 ML (6.2 MG) AT 11:00
     Route: 048
     Dates: start: 20201116

REACTIONS (1)
  - Oliguria [Recovered/Resolved]

NARRATIVE: CASE EVENT DATE: 20201116
